FAERS Safety Report 24133075 (Version 1)
Quarter: 2024Q3

REPORT INFORMATION
  Report Type: Spontaneous
  Country: US (occurrence: US)
  Receive Date: 20240724
  Receipt Date: 20240724
  Transmission Date: 20241017
  Serious: No
  Sender: JOHNSON AND JOHNSON
  Company Number: US-JNJFOC-20240708106

PATIENT
  Age: 38 Year
  Sex: Male

DRUGS (1)
  1. TYLENOL [Suspect]
     Active Substance: ACETAMINOPHEN
     Indication: Back pain
     Route: 065

REACTIONS (3)
  - Back pain [Recovering/Resolving]
  - Illness [Recovering/Resolving]
  - Discomfort [Recovering/Resolving]
